FAERS Safety Report 11753749 (Version 1)
Quarter: 2015Q4

REPORT INFORMATION
  Report Type: Spontaneous
  Country: US (occurrence: None)
  Receive Date: 20151118
  Receipt Date: 20151118
  Transmission Date: 20160304
  Serious: Yes (Hospitalization)
  Sender: FDA-Public Use
  Company Number: None

PATIENT
  Age: 62 Year
  Sex: Male
  Weight: 87.4 kg

DRUGS (4)
  1. VINCRISTINE SULFATE. [Suspect]
     Active Substance: VINCRISTINE SULFATE
     Dates: start: 20151027
  2. METHOTREXATE [Suspect]
     Active Substance: METHOTREXATE
     Dates: start: 20151027
  3. PROCARBAZINE [Suspect]
     Active Substance: PROCARBAZINE
     Dates: start: 20151102
  4. RITUXIMAB (MOAB C2B8 ANTI CD20, CHIMERIC) [Suspect]
     Active Substance: RITUXIMAB
     Dates: start: 20151026

REACTIONS (3)
  - Hypotension [None]
  - Oxygen saturation decreased [None]
  - Urosepsis [None]

NARRATIVE: CASE EVENT DATE: 20151105
